FAERS Safety Report 24238210 (Version 1)
Quarter: 2024Q3

REPORT INFORMATION
  Report Type: Spontaneous
  Country: JP (occurrence: JP)
  Receive Date: 20240822
  Receipt Date: 20240822
  Transmission Date: 20241017
  Serious: Yes (Hospitalization, Other)
  Sender: OTSUKA
  Company Number: JP-OTSUKA-2024_022663

PATIENT
  Age: 6 Decade
  Sex: Male

DRUGS (1)
  1. ARIPIPRAZOLE [Suspect]
     Active Substance: ARIPIPRAZOLE
     Indication: Schizophrenia
     Dosage: UNK
     Route: 065

REACTIONS (2)
  - Deep vein thrombosis [Unknown]
  - Neuroleptic malignant syndrome [Unknown]
